FAERS Safety Report 6130508-2 (Version None)
Quarter: 2009Q1

REPORT INFORMATION
  Report Type: 
  Country: None (occurrence: None)
  Receive Date: 20090323
  Receipt Date: 20090304
  Transmission Date: 20090719
  Serious: Yes (Hospitalization)
  Sender: FDA-Public Use
  Company Number: 8043714

PATIENT
  Age: 75 Year
  Sex: Female
  Weight: 87.9 kg

DRUGS (8)
  1. KEPPRA [Suspect]
     Indication: CONVULSION
     Dosage: 1500 MG /D PO
     Route: 048
     Dates: start: 20050101, end: 20090106
  2. KEPPRA [Suspect]
     Indication: CONVULSION
     Dosage: 2000 MG /D PO
     Route: 048
     Dates: start: 20050101, end: 20090106
  3. KEPPRA [Suspect]
     Indication: CONVULSION
     Dosage: 2000 MG 2/D PO
     Route: 048
     Dates: start: 20090107
  4. VALIUM [Suspect]
  5. NADOLOL [Concomitant]
  6. ZONEGRAN [Concomitant]
  7. DILANTIN [Concomitant]
  8. DILANTIN [Suspect]

REACTIONS (4)
  - AGGRESSION [None]
  - CONTUSION [None]
  - GRAND MAL CONVULSION [None]
  - PSYCHOTIC DISORDER [None]
